FAERS Safety Report 24091612 (Version 2)
Quarter: 2025Q1

REPORT INFORMATION
  Report Type: Report from Study
  Country: IN (occurrence: IN)
  Receive Date: 20240715
  Receipt Date: 20250211
  Transmission Date: 20250408
  Serious: Yes (Hospitalization, Other)
  Sender: INCYTE
  Company Number: IN-002147023-NVSC2024IN143156

PATIENT

DRUGS (2)
  1. RUXOLITINIB [Suspect]
     Active Substance: RUXOLITINIB
     Indication: Polycythaemia vera
     Dosage: 20 MG, QD
     Route: 048
     Dates: start: 20231116
  2. RUXOLITINIB [Suspect]
     Active Substance: RUXOLITINIB
     Dosage: 10 MG, BID
     Route: 048

REACTIONS (10)
  - Peripheral swelling [Unknown]
  - Pyrexia [Unknown]
  - Haemoglobin increased [Unknown]
  - Marrow hyperplasia [Unknown]
  - Pain in extremity [Unknown]
  - Hepatosplenomegaly [Unknown]
  - Gastritis [Unknown]
  - Cough [Unknown]
  - Off label use [Unknown]
  - Thrombocytosis [Unknown]

NARRATIVE: CASE EVENT DATE: 20231228
